FAERS Safety Report 5223181-9 (Version None)
Quarter: 2007Q1

REPORT INFORMATION
  Report Type: 
  Country: None (occurrence: None)
  Receive Date: 20061201
  Receipt Date: 20060703
  Transmission Date: 20070707
  Serious: No
  Sender: FDA-Public Use
  Company Number: 2006PV009275

PATIENT
  Age: 73 Year
  Sex: Female
  Weight: 66.2252 kg

DRUGS (8)
  1. BYETTA [Suspect]
     Indication: DIABETES MELLITUS NON-INSULIN-DEPENDENT
     Dosage: 10 MCG;BID;SC 5 MCG;BID;SC 5 MCG;BID;SC
     Route: 058
     Dates: start: 20060116, end: 20060201
  2. BYETTA [Suspect]
     Indication: DIABETES MELLITUS NON-INSULIN-DEPENDENT
     Dosage: 10 MCG;BID;SC 5 MCG;BID;SC 5 MCG;BID;SC
     Route: 058
     Dates: start: 20060123, end: 20060205
  3. BYETTA [Suspect]
     Indication: DIABETES MELLITUS NON-INSULIN-DEPENDENT
     Dosage: 10 MCG;BID;SC 5 MCG;BID;SC 5 MCG;BID;SC
     Route: 058
     Dates: start: 20060206
  4. BYETTA [Suspect]
  5. BYETTA [Suspect]
  6. GLUCOPHAGE [Concomitant]
  7. MICRONASE [Concomitant]
  8. ACTOS [Concomitant]

REACTIONS (14)
  - ABDOMINAL PAIN UPPER [None]
  - BLOOD GLUCOSE DECREASED [None]
  - BLOOD GLUCOSE INCREASED [None]
  - BONE PAIN [None]
  - DECREASED APPETITE [None]
  - DIARRHOEA [None]
  - DRUG EFFECT DECREASED [None]
  - INCREASED APPETITE [None]
  - NAUSEA [None]
  - PUNCTURE SITE HAEMORRHAGE [None]
  - RASH PAPULAR [None]
  - RASH PRURITIC [None]
  - VOMITING [None]
  - WEIGHT DECREASED [None]
